FAERS Safety Report 19947240 (Version 2)
Quarter: 2021Q4

REPORT INFORMATION
  Report Type: Spontaneous
  Country: US (occurrence: US)
  Receive Date: 20211013
  Receipt Date: 20211025
  Transmission Date: 20220303
  Serious: Yes (Life-Threatening, Hospitalization, Other)
  Sender: FDA-Public Use
  Company Number: US-MLMSERVICE-20210924-3126723-1

PATIENT
  Age: 42 Year
  Sex: Male

DRUGS (7)
  1. OLANZAPINE [Suspect]
     Active Substance: OLANZAPINE
     Indication: Schizophrenia
     Dosage: 20 MILLIGRAM, ONCE A DAY
     Route: 065
  2. DOCONEXENT [Concomitant]
     Active Substance: DOCONEXENT
     Indication: Hypertriglyceridaemia
     Dosage: 500 MILLIGRAM
     Route: 065
  3. ICOSAPENT [Concomitant]
     Active Substance: ICOSAPENT
     Indication: Hypertriglyceridaemia
     Dosage: 500 MILLIGRAM
     Route: 065
  4. HALOPERIDOL DECANOATE [Concomitant]
     Active Substance: HALOPERIDOL DECANOATE
     Indication: Schizophrenia
     Dosage: 100 MILLIGRAM (4 WEEK)
     Route: 065
  5. HALOPERIDOL DECANOATE [Concomitant]
     Active Substance: HALOPERIDOL DECANOATE
     Dosage: 10 MILLIGRAM, ONCE A DAY
     Route: 065
  6. HALOPERIDOL DECANOATE [Concomitant]
     Active Substance: HALOPERIDOL DECANOATE
     Dosage: 200 MILLIGRAM
     Route: 065
  7. HALOPERIDOL [Concomitant]
     Active Substance: HALOPERIDOL
     Indication: Schizophrenia
     Dosage: 10 MILLIGRAM
     Route: 065

REACTIONS (7)
  - Acute respiratory failure [Unknown]
  - Bacteraemia [Unknown]
  - Lactic acidosis [Unknown]
  - Pancreatitis necrotising [Not Recovered/Not Resolved]
  - Peptostreptococcus infection [Unknown]
  - Blood triglycerides increased [Recovering/Resolving]
  - Type 1 diabetes mellitus [Unknown]
